FAERS Safety Report 19496055 (Version 1)
Quarter: 2021Q3

REPORT INFORMATION
  Report Type: Spontaneous
  Country: US (occurrence: US)
  Receive Date: 20210706
  Receipt Date: 20210706
  Transmission Date: 20211014
  Serious: Yes (Death, Life-Threatening, Hospitalization, Other)
  Sender: FDA-Public Use
  Company Number: US-ORION CORPORATION ORION PHARMA-21_00015073

PATIENT
  Sex: Female

DRUGS (2)
  1. HIGH DOSE SYSTEMIC CORTICOSTEROIDS [Suspect]
     Active Substance: CORTICOSTEROID NOS
     Indication: COVID-19 PNEUMONIA
     Route: 065
  2. METHOTREXATE. [Suspect]
     Active Substance: METHOTREXATE
     Indication: RHEUMATOID ARTHRITIS
     Route: 065

REACTIONS (7)
  - Bronchopulmonary aspergillosis [Fatal]
  - Septic shock [Fatal]
  - Tracheobronchitis [Fatal]
  - Oliguria [Fatal]
  - Respiratory failure [Fatal]
  - Interstitial lung disease [Unknown]
  - Cardiac arrest [Fatal]
